FAERS Safety Report 8241040-4 (Version None)
Quarter: 2012Q1

REPORT INFORMATION
  Report Type: 
  Country: None (occurrence: None)
  Receive Date: 20120328
  Receipt Date: 20120321
  Transmission Date: 20120608
  Serious: Yes (Death, Hospitalization, Other)
  Sender: FDA-Public Use
  Company Number: US-CELGENEUS-163-50794-12022217

PATIENT
  Sex: Female
  Weight: 68.61 kg

DRUGS (7)
  1. VORINOSTAT [Suspect]
     Dosage: 400 MILLIGRAM
     Route: 048
     Dates: start: 20111004
  2. PROCHLORPERAZINE [Concomitant]
     Dosage: 10 MILLIGRAM
     Route: 048
  3. VIDAZA [Suspect]
     Dosage: 75 MILLIGRAM/SQ. METER
     Route: 041
     Dates: start: 20111004
  4. GEMTUZUMAB [Suspect]
     Dosage: 3 MILLIGRAM/SQ. METER
     Route: 041
     Dates: start: 20111004
  5. GEMTUZUMAB [Suspect]
     Dosage: 3 MILLIGRAM/SQ. METER
     Route: 041
     Dates: start: 20111104, end: 20111111
  6. VORINOSTAT [Suspect]
     Dosage: 400 MILLIGRAM
     Route: 048
     Dates: start: 20111104, end: 20111112
  7. VIDAZA [Suspect]
     Dosage: 75 MILLIGRAM/SQ. METER
     Route: 041
     Dates: start: 20111104, end: 20111110

REACTIONS (9)
  - PLEURAL EFFUSION [None]
  - PLATELET COUNT DECREASED [None]
  - VOMITING [None]
  - PYREXIA [None]
  - HYPOALBUMINAEMIA [None]
  - SEPSIS [None]
  - INFECTIOUS PERITONITIS [None]
  - DECREASED APPETITE [None]
  - FEBRILE NEUTROPENIA [None]
